FAERS Safety Report 4272659-3 (Version None)
Quarter: 2004Q1

REPORT INFORMATION
  Report Type: 
  Country: None (occurrence: None)
  Receive Date: 20040115
  Receipt Date: 20040115
  Transmission Date: 20041129
  Serious: Yes (Other)
  Sender: FDA-Public Use
  Company Number: None

PATIENT
  Sex: Male
  Weight: 79.3795 kg

DRUGS (2)
  1. ZOSYN [Suspect]
     Indication: ABSCESS
     Dosage: 4.5 GM IV Q 8 HRS
     Route: 042
     Dates: start: 20041111
  2. ZOSYN [Suspect]
     Indication: DIVERTICULUM
     Dosage: 4.5 GM IV Q 8 HRS
     Route: 042
     Dates: start: 20041111

REACTIONS (1)
  - PHARMACEUTICAL PRODUCT COMPLAINT [None]
